FAERS Safety Report 8876442 (Version 1)
Quarter: 2012Q4

REPORT INFORMATION
  Report Type: 
  Country: US (occurrence: US)
  Receive Date: 20121031
  Receipt Date: 20121031
  Transmission Date: 20130627
  Serious: Yes (Hospitalization)
  Sender: FDA-Public Use
  Company Number: US-BAYER-2012-112565

PATIENT
  Age: 30 Year
  Sex: Female

DRUGS (10)
  1. YASMIN [Suspect]
  2. FASTIN [Concomitant]
  3. GLUCOPHAGE XR [Concomitant]
     Dosage: 1000 mg, UNK
  4. GLUCOPHAGE XR [Concomitant]
     Dosage: 500 mg, UNK
  5. GLUCOPHAGE XR [Concomitant]
     Dosage: 750 mg, UNK
  6. PHENTERMINE [Concomitant]
     Dosage: 15 mg, UNK
  7. PHENTERMINE [Concomitant]
     Dosage: 30 mg, UNK
  8. PROTONIX [Concomitant]
     Dosage: 40 mg, UNK
  9. METFORMIN ER [Concomitant]
     Dosage: 500
  10. ALBUTEROL [Concomitant]

REACTIONS (3)
  - Vena cava thrombosis [None]
  - Pulmonary embolism [Recovering/Resolving]
  - Cholecystitis chronic [None]
